FAERS Safety Report 13053809 (Version 1)
Quarter: 2016Q4

REPORT INFORMATION
  Report Type: Report from Study
  Country: IE (occurrence: IE)
  Receive Date: 20161222
  Receipt Date: 20161222
  Transmission Date: 20170207
  Serious: Yes (Hospitalization, Other)
  Sender: FDA-Public Use
  Company Number: IE-AMGEN-IRLSL2016179308

PATIENT
  Age: 60 Year
  Sex: Male

DRUGS (11)
  1. CLOPIDOGREL TAD [Concomitant]
     Dosage: 75 MG, QD
  2. LANSOPRAZOLE. [Concomitant]
     Active Substance: LANSOPRAZOLE
     Dosage: 30 MG, QD
  3. NEOMERCAZOLE [Concomitant]
     Active Substance: CARBIMAZOLE
     Dosage: 15 MG, UNK, Q28 DAYS
  4. NOVORAPID [Concomitant]
     Active Substance: INSULIN ASPART
     Dosage: 0 UNIT, BID
  5. ZOPITAN [Concomitant]
     Dosage: 7.5 MG, QHS
  6. TAMNEXYL [Concomitant]
     Dosage: 400 MG, QD
  7. ASPRIN [Concomitant]
     Active Substance: ASPIRIN
     Dosage: 75 MG, QD
  8. TORVACOL [Concomitant]
     Dosage: 20 MG, QD
  9. BISOP [Concomitant]
     Dosage: 5 MG, QD
  10. NEOMERCAZOLE [Concomitant]
     Active Substance: CARBIMAZOLE
     Dosage: 10 UNK, UNK, ALTERNATE DAYS
  11. ARANESP [Suspect]
     Active Substance: DARBEPOETIN ALFA
     Indication: CHRONIC KIDNEY DISEASE
     Dosage: 40 MUG, Q2WK
     Route: 058
     Dates: start: 20160401

REACTIONS (3)
  - Somnolence [Unknown]
  - Malaise [Unknown]
  - Hospitalisation [Not Recovered/Not Resolved]
